FAERS Safety Report 4356930-2 (Version None)
Quarter: 2004Q2

REPORT INFORMATION
  Report Type: 
  Country: None (occurrence: None)
  Receive Date: 20040507
  Receipt Date: 20040419
  Transmission Date: 20050107
  Serious: Yes (Hospitalization, Other)
  Sender: FDA-Public Use
  Company Number: USA031050862

PATIENT
  Age: 86 Year
  Sex: Female

DRUGS (4)
  1. FORTEO [Suspect]
     Indication: OSTEOPOROSIS
     Dosage: 20 UG/1 DAY
     Dates: start: 20030501
  2. STEROIDS [Concomitant]
  3. CALTRATE (CALCIUM CARBONATE) [Concomitant]
  4. ALENDRONATE SODIUM [Concomitant]

REACTIONS (7)
  - BODY HEIGHT DECREASED [None]
  - BONE DISORDER [None]
  - FALL [None]
  - HIP FRACTURE [None]
  - PAIN [None]
  - POST PROCEDURAL COMPLICATION [None]
  - WRIST FRACTURE [None]
